FAERS Safety Report 10142645 (Version 1)
Quarter: 2014Q2

REPORT INFORMATION
  Report Type: Spontaneous
  Country: GB (occurrence: None)
  Receive Date: 20140425
  Receipt Date: 20140425
  Transmission Date: 20141212
  Serious: Yes (Hospitalization, Other)
  Sender: FDA-Public Use
  Company Number: AUR-APL-2014-04780

PATIENT
  Age: 65 Year
  Sex: Male

DRUGS (13)
  1. METFORMIN (METFORMIN) [Suspect]
     Indication: PRODUCT USED FOR UNKNOWN INDICATION
     Dosage: STOPPED
  2. ACETYLSALICYLIC ACID (ACETYLSALICYLIC ACID) [Suspect]
     Indication: PRODUCT USED FOR UNKNOWN INDICATION
     Dosage: STOPPED
  3. ALISKIREN [Suspect]
     Indication: CARDIOVASCULAR DISORDER
     Route: 048
     Dates: start: 20090512, end: 20091112
  4. ALLOPURINOL (ALLOPURINOL) [Concomitant]
  5. ATENOLOL (ATENOLOL) [Concomitant]
  6. ATORVASTATIN (ATORVASTATIN) [Concomitant]
  7. EZETIMIBE (EZETIMIBE) (TABLET) [Concomitant]
  8. FENOFIBRATE (FENOFIBRATE) (FENOFIBRATE) [Concomitant]
  9. INSULIN GLARGINE (INSULIN GLARGINE) [Concomitant]
  10. NIFEDIPINE (NIFEDIPINE) (NIFEDIPINE) [Concomitant]
  11. NOVORAPID (INSULIN ASPART) [Concomitant]
  12. RAMIPRIL (RAMIPRIL) [Concomitant]
  13. SILDENAFIL (SILDENAFIL) [Concomitant]

REACTIONS (9)
  - Melaena [None]
  - Renal impairment [None]
  - Pallor [None]
  - Lethargy [None]
  - Haemoglobin decreased [None]
  - Haematocrit decreased [None]
  - Duodenitis [None]
  - Oesophagitis [None]
  - Gastrointestinal tract adenoma [None]
